FAERS Safety Report 9008035 (Version 3)
Quarter: 2013Q1

REPORT INFORMATION
  Report Type: Spontaneous
  Country: DE (occurrence: None)
  Receive Date: 20121227
  Receipt Date: 20130301
  Transmission Date: 20140127
  Serious: Yes (Hospitalization)
  Sender: FDA-Public Use
  Company Number: ACO_33403_2012

PATIENT
  Age: 60 Year
  Sex: Female

DRUGS (2)
  1. FAMPYRA (DALFAMPRIDINE) TABLET, 10MG [Suspect]
     Indication: MULTIPLE SCLEROSIS
     Route: 048
     Dates: start: 20120918, end: 20121125
  2. L-THYROXIN (LEVOTHYROXINE SODIUM) [Concomitant]

REACTIONS (2)
  - Benign breast neoplasm [None]
  - Breast neoplasm [None]
